FAERS Safety Report 10773702 (Version 2)
Quarter: 2016Q1

REPORT INFORMATION
  Report Type: Spontaneous
  Country: US (occurrence: US)
  Receive Date: 20150208
  Receipt Date: 20160219
  Transmission Date: 20160525
  Serious: No
  Sender: FDA-Public Use
  Company Number: US-ACORDA-ACO_107732_2014

PATIENT
  Sex: Female
  Weight: 106.58 kg

DRUGS (3)
  1. ^DIABETES MEDICATIONS^ [Concomitant]
     Indication: DIABETES MELLITUS
     Dosage: UNK
     Route: 065
  2. GILENYA [Concomitant]
     Active Substance: FINGOLIMOD HYDROCHLORIDE
     Indication: PRODUCT USED FOR UNKNOWN INDICATION
     Dosage: UNK
     Route: 065
  3. AMPYRA [Suspect]
     Active Substance: DALFAMPRIDINE
     Indication: GAIT DISTURBANCE
     Dosage: 10 MG, BID
     Route: 048
     Dates: start: 201406, end: 201412

REACTIONS (3)
  - Drug ineffective [Unknown]
  - Malaise [Unknown]
  - Crying [Unknown]
